FAERS Safety Report 17259233 (Version 3)
Quarter: 2020Q1

REPORT INFORMATION
  Report Type: Spontaneous
  Country: US (occurrence: US)
  Receive Date: 20200110
  Receipt Date: 20200303
  Transmission Date: 20200409
  Serious: No
  Sender: FDA-Public Use
  Company Number: US-VERTEX PHARMACEUTICALS-2020-000023

PATIENT
  Age: 62 Year
  Sex: Female

DRUGS (17)
  1. ALENDRONATE [Concomitant]
     Active Substance: ALENDRONATE SODIUM
  2. SODIUM CHLORIDE. [Concomitant]
     Active Substance: SODIUM CHLORIDE
  3. TRIKAFTA [Suspect]
     Active Substance: ELEXACAFTOR\IVACAFTOR\TEZACAFTOR
     Indication: CYSTIC FIBROSIS
     Dosage: 2 TABLETS (ELEXACAFTOR 100MG/ TEZACAFTOR 50MG/ IVACAFTOR 75MG) AM; 1 TABLET (IVACAFTOR 150MG) PM
     Route: 048
     Dates: start: 20191223
  4. AZITHROMYCIN ANHYDROUS. [Concomitant]
     Active Substance: AZITHROMYCIN ANHYDROUS
  5. FISH OIL [Concomitant]
     Active Substance: FISH OIL
  6. MONTELUKAST [Concomitant]
     Active Substance: MONTELUKAST SODIUM
  7. CALCIUM D PLUS [Concomitant]
  8. NOVOLOG [Concomitant]
     Active Substance: INSULIN ASPART
  9. PROAIR HFA [Concomitant]
     Active Substance: ALBUTEROL SULFATE
  10. CAYSTON [Concomitant]
     Active Substance: AZTREONAM
  11. FLUTICASONE. [Concomitant]
     Active Substance: FLUTICASONE
  12. CREON [Concomitant]
     Active Substance: PANCRELIPASE AMYLASE\PANCRELIPASE LIPASE\PANCRELIPASE PROTEASE
  13. IRON [Concomitant]
     Active Substance: IRON
  14. LANTUS [Concomitant]
     Active Substance: INSULIN GLARGINE
  15. PULMOZYME [Concomitant]
     Active Substance: DORNASE ALFA
  16. TOBRAMYCIN. [Concomitant]
     Active Substance: TOBRAMYCIN
  17. QVAR [Concomitant]
     Active Substance: BECLOMETHASONE DIPROPIONATE

REACTIONS (1)
  - Productive cough [Recovered/Resolved]

NARRATIVE: CASE EVENT DATE: 20191223
